FAERS Safety Report 4607689-2 (Version None)
Quarter: 2005Q1

REPORT INFORMATION
  Report Type: 
  Country: None (occurrence: None)
  Receive Date: 20050309
  Receipt Date: 20050220
  Transmission Date: 20050727
  Serious: Yes (Death)
  Sender: FDA-Public Use
  Company Number: EWC050242826

PATIENT
  Sex: Female

DRUGS (2)
  1. GEMCITABINE HYDROCHLORIDE-IV (GEMCITABINE) [Suspect]
     Indication: BREAST CANCER METASTATIC
  2. NAVELBINE [Suspect]
     Indication: BREAST CANCER METASTATIC

REACTIONS (8)
  - BILIRUBIN CONJUGATED INCREASED [None]
  - BLOOD BILIRUBIN INCREASED [None]
  - COMA HEPATIC [None]
  - GENERAL PHYSICAL HEALTH DETERIORATION [None]
  - HEPATIC ENZYME INCREASED [None]
  - JAUNDICE [None]
  - PERFORMANCE STATUS DECREASED [None]
  - THERAPEUTIC RESPONSE DECREASED [None]
